FAERS Safety Report 9432156 (Version 1)
Quarter: 2013Q3

REPORT INFORMATION
  Report Type: Spontaneous
  Country: GB (occurrence: None)
  Receive Date: 20130726
  Receipt Date: 20130726
  Transmission Date: 20140515
  Serious: Yes (Hospitalization, Other)
  Sender: FDA-Public Use
  Company Number: AUR-APL-2013-06137

PATIENT
  Age: 44 Year
  Sex: Male

DRUGS (3)
  1. RIBAVIRIN [Suspect]
     Indication: HEPATITIS C
     Route: 048
     Dates: start: 201204
  2. INCIVO [Suspect]
     Indication: HEPATITIS C
     Dates: start: 201204, end: 20121029
  3. INTERFERON ALFA-2B [Suspect]
     Indication: HEPATITIS C
     Route: 058
     Dates: start: 201204, end: 20121029

REACTIONS (8)
  - Anaemia [None]
  - Portal hypertension [None]
  - Fluid retention [None]
  - Blood pressure systolic increased [None]
  - Hepatocellular carcinoma [None]
  - Weight increased [None]
  - Liver transplant [None]
  - Condition aggravated [None]
